FAERS Safety Report 6051918-8 (Version None)
Quarter: 2009Q1

REPORT INFORMATION
  Report Type: 
  Country: None (occurrence: None)
  Receive Date: 20090126
  Receipt Date: 20090115
  Transmission Date: 20090719
  Serious: Yes (Hospitalization)
  Sender: FDA-Public Use
  Company Number: FR-ASTRAZENECA-2009CG00173

PATIENT
  Age: 18583 Day
  Sex: Male

DRUGS (11)
  1. MARCAINE [Suspect]
     Indication: SPINAL ANAESTHESIA
     Route: 037
     Dates: start: 20081125, end: 20081125
  2. CELEBREX [Suspect]
     Route: 048
     Dates: start: 20081125, end: 20081125
  3. SUFENTA PRESERVATIVE FREE [Suspect]
     Indication: SPINAL ANAESTHESIA
     Route: 037
     Dates: start: 20081125, end: 20081125
  4. DIPRIVAN [Concomitant]
     Indication: GENERAL ANAESTHESIA
     Dates: start: 20081125, end: 20081125
  5. MIDAZOLAM HCL [Concomitant]
     Indication: GENERAL ANAESTHESIA
     Dates: start: 20081125, end: 20081125
  6. KETAMINE [Concomitant]
     Indication: GENERAL ANAESTHESIA
     Dates: start: 20081125, end: 20081125
  7. ALFENTANIL [Concomitant]
     Indication: GENERAL ANAESTHESIA
     Dates: start: 20081125, end: 20081125
  8. SEVORANE [Concomitant]
     Indication: GENERAL ANAESTHESIA
     Dates: start: 20081125, end: 20081125
  9. NITROUS OXIDE [Concomitant]
     Indication: GENERAL ANAESTHESIA
     Dates: start: 20081125, end: 20081125
  10. INNOHEP [Concomitant]
     Dates: start: 20081125
  11. DAFALGAN [Concomitant]
     Dates: start: 20081125

REACTIONS (1)
  - MENINGITIS ASEPTIC [None]
